FAERS Safety Report 8803498 (Version 1)
Quarter: 2012Q4

REPORT INFORMATION
  Report Type: 
  Country: AU (occurrence: AU)
  Receive Date: 20120924
  Receipt Date: 20120924
  Transmission Date: 20130627
  Serious: Yes (Hospitalization)
  Sender: FDA-Public Use
  Company Number: AU-009507513-2012SP026999

PATIENT
  Age: 35 Year
  Sex: Female

DRUGS (2)
  1. BRIDION [Suspect]
     Indication: NEUROMUSCULAR BLOCKADE REVERSAL
     Dosage: 2 mg, ONCE
     Route: 065
  2. LEXAPRO [Concomitant]
     Indication: PRODUCT USED FOR UNKNOWN INDICATION
     Dosage: UNK UNK, Unknown
     Route: 065

REACTIONS (2)
  - Hypertonia [Unknown]
  - Alveolar-arterial oxygen gradient increased [Unknown]
